FAERS Safety Report 18567440 (Version 2)
Quarter: 2021Q1

REPORT INFORMATION
  Report Type: Spontaneous
  Country: AU (occurrence: AU)
  Receive Date: 20201201
  Receipt Date: 20210119
  Transmission Date: 20210419
  Serious: Yes (Other)
  Sender: FDA-Public Use
  Company Number: AU-JNJFOC-20201147335

PATIENT
  Age: 62 Year
  Sex: Male
  Weight: 102 kg

DRUGS (1)
  1. STELARA [Suspect]
     Active Substance: USTEKINUMAB
     Indication: PSORIASIS
     Route: 058
     Dates: start: 20140120, end: 20201021

REACTIONS (2)
  - Atrial fibrillation [Unknown]
  - Cardiomegaly [Unknown]

NARRATIVE: CASE EVENT DATE: 202011
